FAERS Safety Report 24731669 (Version 2)
Quarter: 2024Q4

REPORT INFORMATION
  Report Type: Spontaneous
  Country: JP (occurrence: JP)
  Receive Date: 20241213
  Receipt Date: 20241213
  Transmission Date: 20250114
  Serious: Yes (Other)
  Sender: RANBAXY
  Company Number: JP-SUN PHARMACEUTICAL INDUSTRIES LTD-2024RR-484382

PATIENT
  Age: 78 Year
  Sex: Female

DRUGS (4)
  1. PREDNISOLONE [Suspect]
     Active Substance: PREDNISOLONE
     Indication: Developmental hip dysplasia
     Dosage: UNK
     Route: 065
  2. ALENDRONIC ACID [Suspect]
     Active Substance: ALENDRONIC ACID
     Indication: Developmental hip dysplasia
     Dosage: 35 MILLIGRAM
     Route: 065
  3. TERIPARATIDE [Suspect]
     Active Substance: TERIPARATIDE
     Indication: Developmental hip dysplasia
     Dosage: 600 MICROGRAM
     Route: 065
  4. ETIDRONIC ACID [Suspect]
     Active Substance: ETIDRONIC ACID
     Indication: Systemic lupus erythematosus
     Dosage: 200 MILLIGRAM
     Route: 065

REACTIONS (3)
  - Osteoporosis [Unknown]
  - Atypical femur fracture [Unknown]
  - Drug ineffective [Unknown]
